FAERS Safety Report 5750152-6 (Version None)
Quarter: 2008Q2

REPORT INFORMATION
  Report Type: 
  Country: None (occurrence: None)
  Receive Date: 20080527
  Receipt Date: 20080515
  Transmission Date: 20081010
  Serious: Yes (Other)
  Sender: FDA-Public Use
  Company Number: CA-PFIZER INC-2008035837

PATIENT
  Sex: Female
  Weight: 104.3 kg

DRUGS (4)
  1. CHANTIX [Suspect]
     Indication: EX-SMOKER
     Route: 048
     Dates: start: 20080401, end: 20080502
  2. ALCOHOL [Suspect]
     Dates: start: 20080419, end: 20080419
  3. CRESTOR [Concomitant]
     Indication: BLOOD CHOLESTEROL INCREASED
  4. ESCITALOPRAM [Concomitant]
     Indication: DEPRESSION

REACTIONS (3)
  - AMNESIA [None]
  - LOSS OF CONSCIOUSNESS [None]
  - VOMITING [None]
